FAERS Safety Report 25426085 (Version 1)
Quarter: 2025Q2

REPORT INFORMATION
  Report Type: Report from Study
  Country: US (occurrence: US)
  Receive Date: 20250612
  Receipt Date: 20250612
  Transmission Date: 20250716
  Serious: Yes (Other)
  Sender: ABBVIE
  Company Number: US-ABBVIE-6179325

PATIENT
  Sex: Female

DRUGS (1)
  1. SKYRIZI [Suspect]
     Active Substance: RISANKIZUMAB-RZAA
     Indication: Psoriasis
     Route: 058
     Dates: start: 20211222

REACTIONS (6)
  - Polyp [Unknown]
  - Unevaluable event [Unknown]
  - Congenital uterine anomaly [Unknown]
  - Haemorrhagic ovarian cyst [Unknown]
  - Pelvic congestion [Unknown]
  - Loss of consciousness [Unknown]
